APPROVED DRUG PRODUCT: SULFAMETHOXAZOLE AND TRIMETHOPRIM
Active Ingredient: SULFAMETHOXAZOLE; TRIMETHOPRIM
Strength: 80MG/ML;16MG/ML
Dosage Form/Route: INJECTABLE;INJECTION
Application: A073303 | Product #001 | TE Code: AP
Applicant: TEVA PHARMACEUTICALS USA
Approved: Oct 31, 1991 | RLD: No | RS: No | Type: RX